FAERS Safety Report 8909237 (Version 1)
Quarter: 2012Q4

REPORT INFORMATION
  Report Type: Spontaneous
  Country: GB (occurrence: None)
  Receive Date: 20121107
  Receipt Date: 20121107
  Transmission Date: 20130627
  Serious: Yes (Hospitalization)
  Sender: FDA-Public Use
  Company Number: 2012-003807

PATIENT
  Age: 65 Year
  Sex: Female

DRUGS (2)
  1. RISEDRONATE [Suspect]
     Indication: OSTEOPOROSIS
     Route: 048
  2. RISEDRONATE [Suspect]
     Indication: VERTEBRAL FRACTURE
     Route: 048

REACTIONS (5)
  - Atypical femur fracture [None]
  - Femur fracture [None]
  - Arthralgia [None]
  - Tenderness [None]
  - Impaired healing [None]
